FAERS Safety Report 9090542 (Version 2)
Quarter: 2013Q2

REPORT INFORMATION
  Report Type: Spontaneous
  Country: DE (occurrence: DE)
  Receive Date: 20130201
  Receipt Date: 20130416
  Transmission Date: 20140414
  Serious: Yes (Death)
  Sender: FDA-Public Use
  Company Number: DE-ASTRAZENECA-2013SE06118

PATIENT
  Age: 167 Day
  Sex: Male

DRUGS (8)
  1. SYNAGIS [Suspect]
     Indication: PREMATURE BABY
     Route: 030
     Dates: start: 20121011, end: 20121011
  2. SYNAGIS [Suspect]
     Indication: ANTIVIRAL PROPHYLAXIS
     Route: 030
     Dates: start: 20121011, end: 20121011
  3. SYNAGIS [Suspect]
     Indication: PREMATURE BABY
     Route: 030
     Dates: start: 20121107, end: 20121107
  4. SYNAGIS [Suspect]
     Indication: ANTIVIRAL PROPHYLAXIS
     Route: 030
     Dates: start: 20121107, end: 20121107
  5. CAFFEINE CITRATE [Concomitant]
     Dates: start: 20120615
  6. CAFFEINE CITRATE [Concomitant]
     Route: 048
     Dates: start: 20120615
  7. IRON II [Concomitant]
     Dosage: THREE DROPS THREE TIMES A DAY
  8. COLECALCIFEROL+SODIUM FLUORIDE [Concomitant]
     Route: 048

REACTIONS (1)
  - Sudden infant death syndrome [Fatal]
